FAERS Safety Report 5973066-5 (Version None)
Quarter: 2008Q4

REPORT INFORMATION
  Report Type: 
  Country: None (occurrence: None)
  Receive Date: 20081201
  Receipt Date: 20081120
  Transmission Date: 20090506
  Serious: Yes (Hospitalization, Other)
  Sender: FDA-Public Use
  Company Number: DE-ELI_LILLY_AND_COMPANY-DE200811004960

PATIENT
  Sex: Male
  Weight: 37.5 kg

DRUGS (2)
  1. STRATTERA [Suspect]
     Indication: ATTENTION DEFICIT/HYPERACTIVITY DISORDER
     Dosage: UNK, UNKNOWN
     Route: 065
     Dates: start: 20080901
  2. STRATTERA [Suspect]
     Dosage: 60 MG, DAILY (1/D)
     Route: 048
     Dates: start: 20080101

REACTIONS (5)
  - DIZZINESS [None]
  - NAUSEA [None]
  - ORTHOSTATIC INTOLERANCE [None]
  - SYNCOPE [None]
  - TACHYCARDIA [None]
